FAERS Safety Report 7811993-4 (Version None)
Quarter: 2011Q4

REPORT INFORMATION
  Report Type: 
  Country: None (occurrence: None)
  Receive Date: 20111013
  Receipt Date: 20110929
  Transmission Date: 20120403
  Serious: Yes (Other)
  Sender: FDA-Public Use
  Company Number: FR-ROCHE-784755

PATIENT
  Sex: Female
  Weight: 47.4 kg

DRUGS (4)
  1. PEGINTERFERON ALFA-2A [Suspect]
     Indication: CHRONIC MYELOID LEUKAEMIA
     Route: 058
  2. NILOTINIB HYDROCHLORIDE [Suspect]
     Indication: CHRONIC MYELOID LEUKAEMIA
     Route: 048
  3. SERTRALINE HYDROCHLORIDE [Suspect]
     Indication: CHRONIC MYELOID LEUKAEMIA
     Route: 065
  4. SERTRALINE HYDROCHLORIDE [Suspect]
     Route: 065

REACTIONS (1)
  - CHOLESTASIS [None]
